FAERS Safety Report 5293460-8 (Version None)
Quarter: 2007Q2

REPORT INFORMATION
  Report Type: 
  Country: None (occurrence: None)
  Receive Date: 20070411
  Receipt Date: 20070330
  Transmission Date: 20071010
  Serious: Yes (Hospitalization)
  Sender: FDA-Public Use
  Company Number: NL-SANOFI-SYNTHELABO-F01200700011

PATIENT
  Sex: Female
  Weight: 66.1 kg

DRUGS (6)
  1. LEUCOVORIN CALCIUM [Suspect]
     Dosage: CUMULATIVE DOSE 6840 MG
     Route: 042
     Dates: start: 20070102, end: 20070102
  2. BEVACIZUMAB [Suspect]
     Dosage: CUMULATIVE DOSE 1320 MG
     Route: 042
     Dates: start: 20061127, end: 20061127
  3. FLUOROURACIL [Suspect]
     Dosage: 505 MG BOLUS THEN 1300 MG CONTINUOUS INFUSION CUMULATIVE DOSE: BOLUS 11025 MG, INFUSION 15825 MG
     Route: 042
     Dates: start: 20070102, end: 20070103
  4. AMLODIPINE [Concomitant]
     Route: 065
     Dates: start: 20060701
  5. OXALIPLATIN [Suspect]
     Indication: HEPATIC NEOPLASM MALIGNANT NON-RESECTABLE
     Dosage: CUMULATIVE DOSE (SINCE FIRST ADMINISTRATION) 1155 MG
     Route: 042
     Dates: start: 20070102, end: 20070102
  6. METOPROLOL SUCCINATE [Concomitant]
     Dosage: UNK
     Route: 065
     Dates: start: 20060701

REACTIONS (5)
  - ATRIAL FIBRILLATION [None]
  - CARDIAC FAILURE [None]
  - CHILLS [None]
  - DYSPNOEA [None]
  - MALAISE [None]
